FAERS Safety Report 7002422-1 (Version None)
Quarter: 2010Q3

REPORT INFORMATION
  Report Type: 
  Country: None (occurrence: None)
  Receive Date: 20100920
  Receipt Date: 20100511
  Transmission Date: 20110219
  Serious: No
  Sender: FDA-Public Use
  Company Number: US-ASTRAZENECA-2010SE21489

PATIENT

DRUGS (2)
  1. SEROQUEL [Suspect]
     Dosage: TWO 100 MG DOSES
     Route: 048
  2. SERZONE [Suspect]

REACTIONS (3)
  - SEDATION [None]
  - SOMNOLENCE [None]
  - WRONG DRUG ADMINISTERED [None]
